FAERS Safety Report 17042100 (Version 1)
Quarter: 2019Q4

REPORT INFORMATION
  Report Type: Spontaneous
  Country: US (occurrence: US)
  Receive Date: 20191017
  Receipt Date: 20191017
  Transmission Date: 20200122
  Serious: No
  Sender: FDA-Public Use
  Company Number: None

PATIENT
  Age: 67 Year
  Sex: Female
  Weight: 78.29 kg

DRUGS (1)
  1. TAXOTERE [Suspect]
     Active Substance: DOCETAXEL
     Indication: BREAST CANCER
     Dosage: ?          OTHER FREQUENCY:EVERY 3 WKS;?
     Route: 042
     Dates: start: 20191016

REACTIONS (4)
  - Chest discomfort [None]
  - Oropharyngeal discomfort [None]
  - Infusion related reaction [None]
  - Oropharyngeal pain [None]

NARRATIVE: CASE EVENT DATE: 20191016
